FAERS Safety Report 5074999-7 (Version None)
Quarter: 2006Q3

REPORT INFORMATION
  Report Type: 
  Country: None (occurrence: None)
  Receive Date: 20060807
  Receipt Date: 20060807
  Transmission Date: 20061208
  Serious: No
  Sender: FDA-Public Use
  Company Number: None

PATIENT
  Sex: Female

DRUGS (1)
  1. DEPAKOTE ER [Suspect]
     Indication: DEPRESSION
     Dosage: 3 X 500 MG -1500 MG-  QD  PO
     Route: 048
     Dates: start: 20031112, end: 20060806

REACTIONS (4)
  - DYSARTHRIA [None]
  - PERFORMANCE STATUS DECREASED [None]
  - SOMNOLENCE [None]
  - VISION BLURRED [None]
